FAERS Safety Report 5064799-6 (Version None)
Quarter: 2006Q3

REPORT INFORMATION
  Report Type: 
  Country: None (occurrence: None)
  Receive Date: 20060728
  Receipt Date: 20060524
  Transmission Date: 20061208
  Serious: Yes (Hospitalization, Other)
  Sender: FDA-Public Use
  Company Number: PHEH2006US06803

PATIENT
  Age: 54 Year
  Sex: Female

DRUGS (4)
  1. XELODA [Concomitant]
     Indication: BREAST CANCER METASTATIC
     Route: 048
     Dates: start: 20030619, end: 20050105
  2. FASLODEX [Concomitant]
     Indication: BREAST CANCER METASTATIC
     Dates: start: 20050125, end: 20060630
  3. TAXOTERE [Concomitant]
     Indication: BREAST CANCER METASTATIC
     Dosage: 65 MG/M2, UNK
     Dates: start: 20030619, end: 20050105
  4. ZOMETA [Suspect]
     Indication: BREAST CANCER METASTATIC
     Dosage: 4 MG EVERY 28 DAYS
     Dates: start: 20030618, end: 20060210

REACTIONS (10)
  - ABSCESS DRAINAGE [None]
  - ABSCESS JAW [None]
  - CELLULITIS [None]
  - ERYTHEMA [None]
  - IMPAIRED HEALING [None]
  - OSTEOMYELITIS [None]
  - OSTEONECROSIS [None]
  - PAIN IN JAW [None]
  - SWELLING [None]
  - WOUND TREATMENT [None]
